FAERS Safety Report 11518462 (Version 2)
Quarter: 2015Q4

REPORT INFORMATION
  Report Type: Report from Study
  Country: US (occurrence: US)
  Receive Date: 20150917
  Receipt Date: 20151113
  Transmission Date: 20160304
  Serious: Yes (Hospitalization)
  Sender: FDA-Public Use
  Company Number: PHEH2015US018258

PATIENT
  Sex: Male
  Weight: 54.2 kg

DRUGS (1)
  1. TOBI PODHALER [Suspect]
     Active Substance: TOBRAMYCIN
     Indication: CYSTIC FIBROSIS
     Dosage: 112 MG, BID
     Route: 055

REACTIONS (4)
  - Lung disorder [Unknown]
  - Malaise [Unknown]
  - Condition aggravated [Unknown]
  - Pulmonary function test decreased [Unknown]
